FAERS Safety Report 26048185 (Version 1)
Quarter: 2025Q4

REPORT INFORMATION
  Report Type: Spontaneous
  Country: EU (occurrence: EU)
  Receive Date: 20251114
  Receipt Date: 20251114
  Transmission Date: 20260118
  Serious: Yes (Death)
  Sender: BIOGEN
  Company Number: EU-BIOGEN-2090681

PATIENT
  Age: 47 Year
  Sex: Male
  Weight: 38 kg

DRUGS (1)
  1. SPINRAZA [Suspect]
     Active Substance: NUSINERSEN
     Indication: Spinal muscular atrophy

REACTIONS (1)
  - Pneumonia [Fatal]
